FAERS Safety Report 8476752-0 (Version None)
Quarter: 2012Q2

REPORT INFORMATION
  Report Type: 
  Country: None (occurrence: None)
  Receive Date: 20120628
  Receipt Date: 20120622
  Transmission Date: 20120825
  Serious: Yes (Hospitalization)
  Sender: FDA-Public Use
  Company Number: US-MERCK-1201USA04014

PATIENT
  Age: 54 Year
  Sex: Female
  Weight: 55 kg

DRUGS (9)
  1. ZOCOR [Concomitant]
     Route: 048
  2. ATENOLOL [Concomitant]
     Route: 065
     Dates: start: 19960101
  3. FOSAMAX [Suspect]
     Indication: OSTEOPOROSIS
     Route: 048
     Dates: start: 20000301, end: 20100701
  4. PROTONIX [Concomitant]
     Route: 065
     Dates: start: 19900101
  5. MULTI-VITAMINS [Concomitant]
     Route: 065
     Dates: start: 19700101
  6. CENTRUM (MINERALS (UNSPECIFIED) (+) VITAMINS (UNSPECIFIED)) [Concomitant]
     Route: 065
     Dates: start: 19700101
  7. CALCIUM (UNSPECIFIED) [Concomitant]
     Route: 065
     Dates: start: 19700101
  8. ZETIA [Concomitant]
     Route: 048
  9. VITAMIN D (UNSPECIFIED) [Concomitant]
     Route: 065
     Dates: start: 19700101

REACTIONS (19)
  - CHRONIC OBSTRUCTIVE PULMONARY DISEASE [None]
  - FEMUR FRACTURE [None]
  - HYPOALBUMINAEMIA [None]
  - TOOTH DISORDER [None]
  - NIGHT SWEATS [None]
  - MITRAL VALVE PROLAPSE [None]
  - GASTRITIS [None]
  - OSTEOPENIA [None]
  - URINARY INCONTINENCE [None]
  - HYPERCHROMIC ANAEMIA [None]
  - DEPRESSION [None]
  - ASTHENIA [None]
  - REVERSIBLE AIRWAYS OBSTRUCTION [None]
  - VITAMIN D DECREASED [None]
  - HYPOTHYROIDISM [None]
  - ATELECTASIS [None]
  - VOMITING [None]
  - EMPHYSEMA [None]
  - NAUSEA [None]
